FAERS Safety Report 24780408 (Version 2)
Quarter: 2025Q1

REPORT INFORMATION
  Report Type: Other
  Country: US (occurrence: US)
  Receive Date: 20241227
  Receipt Date: 20250109
  Transmission Date: 20250409
  Serious: Yes (Hospitalization, Other)
  Sender: INTERCEPT PHARMACEUTICALS
  Company Number: US-INTERCEPT-PM2024002567

PATIENT
  Age: 75 Year
  Sex: Female
  Weight: 40.363 kg

DRUGS (9)
  1. OCALIVA [Suspect]
     Active Substance: OBETICHOLIC ACID
     Indication: Primary biliary cholangitis
     Dosage: 5 MILLIGRAM, QD
     Route: 048
     Dates: start: 2016, end: 202409
  2. OCALIVA [Suspect]
     Active Substance: OBETICHOLIC ACID
     Indication: Product use in unapproved indication
  3. URSODIOL [Concomitant]
     Active Substance: URSODIOL
  4. HYDROCHLOROTHIAZIDE [Concomitant]
     Active Substance: HYDROCHLOROTHIAZIDE
  5. AMLODIPINE BESYLATE [Concomitant]
     Active Substance: AMLODIPINE BESYLATE
  6. SIMVASTATIN [Concomitant]
     Active Substance: SIMVASTATIN
  7. OXYGEN [Concomitant]
     Active Substance: OXYGEN
  8. Equate complete multivitamin women 50+ [Concomitant]
  9. CALCIUM [Concomitant]
     Active Substance: CALCIUM

REACTIONS (3)
  - Pulmonary oedema [Unknown]
  - Pulmonary thrombosis [Unknown]
  - Pneumonia [Unknown]

NARRATIVE: CASE EVENT DATE: 20241211
